FAERS Safety Report 24132420 (Version 2)
Quarter: 2024Q3

REPORT INFORMATION
  Report Type: Spontaneous
  Country: FR (occurrence: FR)
  Receive Date: 20240724
  Receipt Date: 20240802
  Transmission Date: 20241016
  Serious: Yes (Hospitalization, Other)
  Sender: PFIZER
  Company Number: None

PATIENT
  Age: 45 Year
  Sex: Female
  Weight: 60 kg

DRUGS (5)
  1. ZIRABEV [Interacting]
     Active Substance: BEVACIZUMAB-BVZR
     Indication: Metastatic malignant melanoma
     Dosage: 475 MG, CYCLICAL
     Route: 042
     Dates: start: 20230710, end: 20240311
  2. BRAFTOVI [Suspect]
     Active Substance: ENCORAFENIB
     Indication: Metastatic malignant melanoma
     Dosage: 450 MG PER DAY
     Route: 048
     Dates: start: 20220822
  3. MEKTOVI [Suspect]
     Active Substance: BINIMETINIB
     Indication: Metastatic malignant melanoma
     Dosage: 90 MG PER DAY
     Route: 048
     Dates: start: 20220822
  4. KAYEXALATE [Interacting]
     Active Substance: SODIUM POLYSTYRENE SULFONATE
     Indication: Hyperkalaemia
     Dosage: 30 G PER DAY
     Route: 048
     Dates: start: 20240201, end: 20240406
  5. PREDNISOLONE METASULFOBENZOATE SODIUM [Interacting]
     Active Substance: PREDNISOLONE SODIUM METAZOATE
     Indication: Metastatic malignant melanoma
     Dosage: 20 MG PER DAY
     Route: 048
     Dates: start: 202306

REACTIONS (2)
  - Large intestine perforation [Recovered/Resolved with Sequelae]
  - Drug interaction [Recovered/Resolved with Sequelae]

NARRATIVE: CASE EVENT DATE: 20240101
